FAERS Safety Report 10024415 (Version 3)
Quarter: 2014Q2

REPORT INFORMATION
  Report Type: Spontaneous
  Country: US (occurrence: US)
  Receive Date: 20140320
  Receipt Date: 20140625
  Transmission Date: 20141212
  Serious: Yes (Disabling, Other)
  Sender: FDA-Public Use
  Company Number: US-PFIZER INC-2014072963

PATIENT
  Age: 58 Year
  Sex: Female

DRUGS (5)
  1. LIPITOR [Suspect]
     Indication: LOW DENSITY LIPOPROTEIN INCREASED
     Dosage: 20 MG, 1X/DAY
     Route: 048
     Dates: start: 200205, end: 200409
  2. LIPITOR [Suspect]
     Indication: CARDIOVASCULAR EVENT PROPHYLAXIS
  3. LIPITOR [Suspect]
     Indication: CORONARY ARTERY DISEASE
  4. FISH OIL [Concomitant]
     Indication: GASTROINTESTINAL DISORDER
     Dosage: 1000 MG, 1X/DAY
     Dates: start: 2002
  5. ASPIRIN [Concomitant]
     Indication: CORONARY ARTERY DISEASE
     Dosage: 81 MG, 1X/DAY
     Dates: start: 2002

REACTIONS (1)
  - Type 2 diabetes mellitus [Not Recovered/Not Resolved]
